FAERS Safety Report 7213031-3 (Version None)
Quarter: 2011Q1

REPORT INFORMATION
  Report Type: 
  Country: None (occurrence: None)
  Receive Date: 20110106
  Receipt Date: 20101228
  Transmission Date: 20110831
  Serious: Yes (Life-Threatening, Hospitalization)
  Sender: FDA-Public Use
  Company Number: B0684068A

PATIENT
  Sex: Female

DRUGS (3)
  1. MUCODYNE [Suspect]
     Indication: PRODUCT USED FOR UNKNOWN INDICATION
     Dosage: 1000MG PER DAY
     Route: 048
     Dates: start: 20101108
  2. AUGMENTIN '125' [Suspect]
     Indication: PRODUCT USED FOR UNKNOWN INDICATION
     Dosage: 4IUAX PER DAY
     Route: 048
     Dates: start: 20101108
  3. CALONAL [Suspect]
     Indication: PRODUCT USED FOR UNKNOWN INDICATION

REACTIONS (15)
  - BLOOD PRESSURE DECREASED [None]
  - SHOCK [None]
  - PALLOR [None]
  - TOXIC SKIN ERUPTION [None]
  - STEVENS-JOHNSON SYNDROME [None]
  - VISUAL IMPAIRMENT [None]
  - PYREXIA [None]
  - FACE OEDEMA [None]
  - CHILLS [None]
  - LIP BLISTER [None]
  - HEADACHE [None]
  - VOMITING [None]
  - OCULAR HYPERAEMIA [None]
  - GENERALISED ERYTHEMA [None]
  - CONDITION AGGRAVATED [None]
